FAERS Safety Report 7860933-0 (Version None)
Quarter: 2011Q4

REPORT INFORMATION
  Report Type: 
  Country: None (occurrence: None)
  Receive Date: 20111027
  Receipt Date: 20111018
  Transmission Date: 20120403
  Serious: Yes (Hospitalization)
  Sender: FDA-Public Use
  Company Number: US-BAYER-2011-102958

PATIENT
  Sex: Female
  Weight: 72.562 kg

DRUGS (7)
  1. ALBUTEROL [Concomitant]
     Dosage: UNK
     Dates: start: 20080101
  2. ACIPHEX [Concomitant]
     Indication: GASTROOESOPHAGEAL REFLUX DISEASE
     Dosage: UNK
     Dates: start: 20030101, end: 20100101
  3. KAPIDEX [Concomitant]
     Dosage: 60 MG, BID
     Route: 048
  4. YAZ [Suspect]
  5. CARAFATE [Concomitant]
     Dosage: 1 G, QD
     Route: 048
  6. NUVARING [Concomitant]
  7. SOLODYN [Concomitant]
     Dosage: 45 MG, QD
     Route: 048

REACTIONS (6)
  - ABDOMINAL PAIN [None]
  - CHOLECYSTITIS ACUTE [None]
  - GALLBLADDER DISORDER [None]
  - NAUSEA [None]
  - DYSPEPSIA [None]
  - DYSPNOEA [None]
